FAERS Safety Report 7487953-2 (Version None)
Quarter: 2011Q2

REPORT INFORMATION
  Report Type: 
  Country: None (occurrence: None)
  Receive Date: 20110518
  Receipt Date: 20110511
  Transmission Date: 20111010
  Serious: Yes (Disabling, Other)
  Sender: FDA-Public Use
  Company Number: US-NAPPMUNDI-USA-2011-0068079

PATIENT
  Age: 18 Year
  Sex: Male

DRUGS (1)
  1. OXYCODONE HCL [Suspect]
     Indication: PRODUCT USED FOR UNKNOWN INDICATION
     Dosage: UNK UNK, UNK
     Dates: start: 20080101

REACTIONS (5)
  - ACCIDENTAL OVERDOSE [None]
  - BRAIN INJURY [None]
  - COMA [None]
  - DRUG DISPENSING ERROR [None]
  - PARALYSIS [None]
